FAERS Safety Report 4574793-7 (Version None)
Quarter: 2005Q1

REPORT INFORMATION
  Report Type: 
  Country: None (occurrence: None)
  Receive Date: 20050208
  Receipt Date: 20040628
  Transmission Date: 20050727
  Serious: No
  Sender: FDA-Public Use
  Company Number: US-GLAXOSMITHKLINE-A0516230A

PATIENT
  Age: 34 Year
  Sex: Female

DRUGS (3)
  1. PAXIL CR [Suspect]
     Indication: DEPRESSION
     Dosage: 12.5MG PER DAY
     Route: 048
  2. ORTHO TRI-CYCLEN [Concomitant]
  3. FIBER SUPPLEMENT [Concomitant]

REACTIONS (2)
  - CONSTIPATION [None]
  - INCREASED APPETITE [None]
